FAERS Safety Report 23333142 (Version 4)
Quarter: 2024Q1

REPORT INFORMATION
  Report Type: Spontaneous
  Country: US (occurrence: US)
  Receive Date: 20231222
  Receipt Date: 20240215
  Transmission Date: 20240409
  Serious: No
  Sender: FDA-Public Use
  Company Number: US-PFIZER INC-PV202300205968

PATIENT
  Age: 74 Year
  Sex: Female
  Weight: 44.9 kg

DRUGS (7)
  1. BRAFTOVI [Suspect]
     Active Substance: ENCORAFENIB
     Indication: Adenocarcinoma of colon
     Dosage: TAKE 300 MG BY MOUTH 1 (ONE) TIME A DAY
     Route: 048
     Dates: start: 20230818
  2. MEKTOVI [Suspect]
     Active Substance: BINIMETINIB
     Indication: Adenocarcinoma of colon
     Dosage: UNK
     Dates: start: 20230818, end: 20230929
  3. BINIMETINIB [Suspect]
     Active Substance: BINIMETINIB
     Indication: Adenocarcinoma of colon
     Dosage: UNK
     Dates: start: 20230818, end: 20230929
  4. ENCORAFENIB [Suspect]
     Active Substance: ENCORAFENIB
     Indication: Adenocarcinoma of colon
     Dosage: 300 MG, DAILY
     Dates: start: 20230818
  5. CETUXIMAB [Suspect]
     Active Substance: CETUXIMAB
     Indication: Adenocarcinoma of colon
     Dosage: UNK
     Dates: start: 20230818
  6. CETUXIMAB [Suspect]
     Active Substance: CETUXIMAB
     Dosage: ROUND TO 200 MG
     Dates: start: 20230929, end: 202312
  7. LOMOTIL [Concomitant]
     Active Substance: ATROPINE SULFATE\DIPHENOXYLATE HYDROCHLORIDE
     Dosage: 1 DF, 4X/DAY
     Route: 048

REACTIONS (3)
  - Gastrointestinal stoma output increased [Not Recovered/Not Resolved]
  - Upper respiratory tract infection [Unknown]
  - Off label use [Unknown]

NARRATIVE: CASE EVENT DATE: 20230818
